FAERS Safety Report 10061583 (Version 1)
Quarter: 2014Q2

REPORT INFORMATION
  Report Type: Spontaneous
  Country: US (occurrence: None)
  Receive Date: 20140403
  Receipt Date: 20140403
  Transmission Date: 20141212
  Serious: Yes (Hospitalization, Other)
  Sender: FDA-Public Use
  Company Number: 2014P1002567

PATIENT
  Age: 14 Year
  Sex: Male

DRUGS (3)
  1. ACTIMMUNE [Suspect]
     Indication: CHRONIC GRANULOMATOUS DISEASE
     Route: 058
     Dates: start: 2000
  2. BACTRIM [Concomitant]
  3. SPORANOX [Concomitant]

REACTIONS (3)
  - Colitis [None]
  - Paronychia [None]
  - Pneumonia [None]
